FAERS Safety Report 10485276 (Version 1)
Quarter: 2014Q3

REPORT INFORMATION
  Report Type: Spontaneous
  Country: BR (occurrence: BR)
  Receive Date: 20140930
  Receipt Date: 20140930
  Transmission Date: 20150326
  Serious: Yes (Hospitalization, Other)
  Sender: FDA-Public Use
  Company Number: BR-PFIZER INC-2014267293

PATIENT
  Age: 81 Year
  Sex: Male
  Weight: 99 kg

DRUGS (4)
  1. LANTUS [Concomitant]
     Active Substance: INSULIN GLARGINE
     Indication: DIABETES MELLITUS
     Dosage: 20 ML, 1X/DAY
     Dates: start: 2010
  2. LIPITOR [Suspect]
     Active Substance: ATORVASTATIN CALCIUM
     Dosage: 20 MG, 1X/DAY
     Route: 048
     Dates: start: 2011
  3. AZITHROMYCIN [Concomitant]
     Active Substance: AZITHROMYCIN ANHYDROUS
     Indication: LUNG DISORDER
     Dosage: 1 DF, WEEKLY
     Dates: start: 201405
  4. ADDERA D3 [Concomitant]
     Active Substance: CHOLECALCIFEROL
     Dosage: 8 GTT, 1X/DAY IN THE MORNING
     Dates: start: 201404

REACTIONS (6)
  - Renal disorder [Unknown]
  - Abasia [Unknown]
  - Cardiac disorder [Unknown]
  - Pneumonia [Unknown]
  - Bedridden [Not Recovered/Not Resolved]
  - Lung disorder [Unknown]

NARRATIVE: CASE EVENT DATE: 2014
